FAERS Safety Report 25345563 (Version 3)
Quarter: 2025Q3

REPORT INFORMATION
  Report Type: Report from Study
  Country: TR (occurrence: TR)
  Receive Date: 20250522
  Receipt Date: 20250708
  Transmission Date: 20251020
  Serious: Yes (Other)
  Sender: ROCHE
  Company Number: TR-ROCHE-10000289644

PATIENT
  Age: 56 Year
  Sex: Female

DRUGS (12)
  1. AVASTIN [Suspect]
     Active Substance: BEVACIZUMAB
     Indication: Diabetic retinopathy
     Route: 050
  2. AVASTIN [Suspect]
     Active Substance: BEVACIZUMAB
     Route: 050
  3. AVASTIN [Suspect]
     Active Substance: BEVACIZUMAB
     Route: 050
  4. AVASTIN [Suspect]
     Active Substance: BEVACIZUMAB
     Route: 050
  5. AVASTIN [Suspect]
     Active Substance: BEVACIZUMAB
     Route: 050
  6. AVASTIN [Suspect]
     Active Substance: BEVACIZUMAB
     Route: 050
  7. AVASTIN [Suspect]
     Active Substance: BEVACIZUMAB
     Route: 050
  8. AVASTIN [Suspect]
     Active Substance: BEVACIZUMAB
     Route: 050
  9. AVASTIN [Suspect]
     Active Substance: BEVACIZUMAB
     Route: 050
  10. AVASTIN [Suspect]
     Active Substance: BEVACIZUMAB
     Route: 050
  11. AVASTIN [Suspect]
     Active Substance: BEVACIZUMAB
     Route: 050
  12. AVASTIN [Suspect]
     Active Substance: BEVACIZUMAB
     Route: 050

REACTIONS (4)
  - Endophthalmitis [Unknown]
  - Off label use [Unknown]
  - Off label use [Unknown]
  - Suspected transmission of an infectious agent via product [Unknown]
